FAERS Safety Report 9841182 (Version 1)
Quarter: 2013Q4

REPORT INFORMATION
  Report Type: Spontaneous
  Country: US (occurrence: None)
  Receive Date: 20131219
  Receipt Date: 20131219
  Transmission Date: 20140711
  Serious: Yes (Disabling)
  Sender: FDA-Public Use
  Company Number: 163-20785-12080219

PATIENT
  Age: 64 Year
  Sex: Male
  Weight: 83.92 kg

DRUGS (9)
  1. THALOMID [Suspect]
     Indication: PLASMA CELL MYELOMA
     Dosage: 100 MG, 1 IN 1 D, PO
     Route: 048
     Dates: start: 20100603, end: 201211
  2. ALLOPURINOL (ALLOPURINOL) (UNKNOWN) [Concomitant]
  3. CALCIUM 600 + D (LEKOVIT CA) (UNKNOWN) [Concomitant]
  4. LISINOPRIL/HYDROCHLOROTHIAZIDE (PRINZIDE) (UNKNOWN) [Concomitant]
  5. MULTIVITAMINS (MULTIVITAMINS) (UNKNOWN) [Concomitant]
  6. TYLENOL EXTRA STRENGTH (PARACETAMOL) (UNKNOWN) [Concomitant]
  7. ASA (ACETYSLAICYLIC ACID) (UNKNOWN) [Concomitant]
  8. HCTZ (HYDROCHLOROTHIAZIDE) (UNKNOWN) [Concomitant]
  9. TIMOLOL (TIMOLOL) (UNKNOWN) [Concomitant]

REACTIONS (2)
  - Neuropathy peripheral [None]
  - Plasma cell myeloma [None]
